FAERS Safety Report 24757845 (Version 2)
Quarter: 2025Q1

REPORT INFORMATION
  Report Type: Report from Study
  Country: GB (occurrence: GB)
  Receive Date: 20241220
  Receipt Date: 20250102
  Transmission Date: 20250409
  Serious: Yes (Other)
  Sender: SAMSUNG BIOEPIS
  Company Number: GB-SAMSUNG BIOEPIS-SB-2024-38163

PATIENT
  Age: 34 Year
  Sex: Female

DRUGS (1)
  1. EPYSQLI [Suspect]
     Active Substance: ECULIZUMAB-AAGH
     Indication: Paroxysmal nocturnal haemoglobinuria
     Dosage: VIAL;
     Dates: start: 202406

REACTIONS (5)
  - Lower respiratory tract infection [Unknown]
  - Proteinuria [Unknown]
  - Maternal exposure during pregnancy [Unknown]
  - Off label use [Unknown]
  - Paraesthesia [Unknown]

NARRATIVE: CASE EVENT DATE: 20241206
